FAERS Safety Report 23202069 (Version 4)
Quarter: 2024Q3

REPORT INFORMATION
  Report Type: Report from Study
  Country: JP (occurrence: JP)
  Receive Date: 20231120
  Receipt Date: 20240814
  Transmission Date: 20241016
  Serious: Yes (Life-Threatening, Hospitalization, Other)
  Sender: SANOFI AVENTIS
  Company Number: JP-SA-2023SA353660

PATIENT
  Age: 51 Year
  Sex: Male
  Weight: 88.6 kg

DRUGS (27)
  1. CAPLACIZUMAB [Suspect]
     Active Substance: CAPLACIZUMAB
     Indication: Thrombotic thrombocytopenic purpura
     Dosage: 10 MG, QD (AFTER THE PLASMA EXCHANGE PERIOD)
     Route: 058
     Dates: start: 20231109, end: 20231112
  2. CAPLACIZUMAB [Suspect]
     Active Substance: CAPLACIZUMAB
     Indication: Thrombotic thrombocytopenic purpura
     Dosage: 10 MG, QD (AFTER THE PLASMA EXCHANGE PERIOD)
     Route: 058
     Dates: start: 20231109, end: 20231112
  3. CAPLACIZUMAB [Suspect]
     Active Substance: CAPLACIZUMAB
     Indication: Thrombotic thrombocytopenic purpura
     Dosage: 10 MG, QD (AFTER THE PLASMA EXCHANGE PERIOD)
     Route: 058
     Dates: start: 20231109, end: 20231112
  4. CAPLACIZUMAB [Suspect]
     Active Substance: CAPLACIZUMAB
     Indication: Thrombotic thrombocytopenic purpura
     Dosage: 10 MG, QD (AFTER THE PLASMA EXCHANGE PERIOD)
     Route: 058
     Dates: start: 20231109, end: 20231112
  5. CAPLACIZUMAB [Suspect]
     Active Substance: CAPLACIZUMAB
     Dosage: 10 MG, 1X
     Route: 042
     Dates: start: 20231108, end: 20231108
  6. CAPLACIZUMAB [Suspect]
     Active Substance: CAPLACIZUMAB
     Dosage: 10 MG, 1X
     Route: 042
     Dates: start: 20231108, end: 20231108
  7. CAPLACIZUMAB [Suspect]
     Active Substance: CAPLACIZUMAB
     Dosage: 10 MG, 1X
     Route: 042
     Dates: start: 20231108, end: 20231108
  8. CAPLACIZUMAB [Suspect]
     Active Substance: CAPLACIZUMAB
     Dosage: 10 MG, 1X
     Route: 042
     Dates: start: 20231108, end: 20231108
  9. CAPLACIZUMAB [Suspect]
     Active Substance: CAPLACIZUMAB
     Dosage: 10 MG, 1X
     Route: 058
     Dates: start: 20231108, end: 20231108
  10. CAPLACIZUMAB [Suspect]
     Active Substance: CAPLACIZUMAB
     Dosage: 10 MG, 1X
     Route: 058
     Dates: start: 20231108, end: 20231108
  11. CAPLACIZUMAB [Suspect]
     Active Substance: CAPLACIZUMAB
     Dosage: 10 MG, 1X
     Route: 058
     Dates: start: 20231108, end: 20231108
  12. CAPLACIZUMAB [Suspect]
     Active Substance: CAPLACIZUMAB
     Dosage: 10 MG, 1X
     Route: 058
     Dates: start: 20231108, end: 20231108
  13. CAPLACIZUMAB [Suspect]
     Active Substance: CAPLACIZUMAB
     Dosage: 10 MG, QD
     Route: 058
     Dates: start: 20231121, end: 20231126
  14. CAPLACIZUMAB [Suspect]
     Active Substance: CAPLACIZUMAB
     Dosage: 10 MG, QD
     Route: 058
     Dates: start: 20231121, end: 20231126
  15. CAPLACIZUMAB [Suspect]
     Active Substance: CAPLACIZUMAB
     Dosage: 10 MG, QD
     Route: 058
     Dates: start: 20231121, end: 20231126
  16. CAPLACIZUMAB [Suspect]
     Active Substance: CAPLACIZUMAB
     Dosage: 10 MG, QD
     Route: 058
     Dates: start: 20231121, end: 20231126
  17. ATOVAQUONE [Suspect]
     Active Substance: ATOVAQUONE
     Indication: Product used for unknown indication
     Route: 065
  18. PREDONINE [Concomitant]
     Active Substance: PREDNISOLONE
     Indication: Thrombotic thrombocytopenic purpura
     Dosage: 90 MG, 7 DOSES PER WEEK
     Route: 065
     Dates: start: 20231113, end: 20231114
  19. PREDONINE [Concomitant]
     Active Substance: PREDNISOLONE
     Dosage: 60 MG, 7 DOSES PER WEEK
     Route: 065
     Dates: start: 20231115, end: 20231127
  20. PREDONINE [Concomitant]
     Active Substance: PREDNISOLONE
     Dosage: 40 MG, 7 DOSES PER WEEK
     Route: 065
     Dates: start: 20231129, end: 20231206
  21. PREDONINE [Concomitant]
     Active Substance: PREDNISOLONE
     Dosage: 30 MG, 7 DOSES PER WEEK
     Route: 065
     Dates: start: 20231207, end: 20231214
  22. PREDONINE [Concomitant]
     Active Substance: PREDNISOLONE
     Dosage: 25 MG, 7 DOSES PER WEEK
     Route: 065
     Dates: start: 20231215, end: 20231221
  23. PREDONINE [Concomitant]
     Active Substance: PREDNISOLONE
     Dosage: 20 MG, 7 DOSES PER WEEK
     Route: 065
     Dates: start: 20231222, end: 20240104
  24. PREDONINE [Concomitant]
     Active Substance: PREDNISOLONE
     Dosage: 15 MG, 7 DOSES PER WEEK
     Route: 065
     Dates: start: 20240105, end: 20240201
  25. PREDONINE [Concomitant]
     Active Substance: PREDNISOLONE
     Dosage: 10 MG, 7 DOSES PER WEEK
     Route: 065
     Dates: start: 20240202, end: 20240229
  26. PREDONINE [Concomitant]
     Active Substance: PREDNISOLONE
     Dosage: 7.5 MG, 7 DOSES PER WEEK
     Route: 065
     Dates: start: 20240301, end: 20240404
  27. PREDONINE [Concomitant]
     Active Substance: PREDNISOLONE
     Dosage: 5 MG, 7 DOSES PER WEEK
     Route: 065
     Dates: start: 20240405

REACTIONS (2)
  - Laryngeal oedema [Recovering/Resolving]
  - Altered state of consciousness [Unknown]

NARRATIVE: CASE EVENT DATE: 20231101
